FAERS Safety Report 8878941 (Version 5)
Quarter: 2013Q1

REPORT INFORMATION
  Report Type: Spontaneous
  Country: US (occurrence: US)
  Receive Date: 20121026
  Receipt Date: 20130329
  Transmission Date: 20140127
  Serious: Yes (Hospitalization, Other)
  Sender: FDA-Public Use
  Company Number: US-009507513-2012SP036112

PATIENT
  Sex: Female
  Weight: 71.66 kg

DRUGS (1)
  1. NUVARING [Suspect]
     Indication: CONTRACEPTION
     Dosage: UNK UNK, QM
     Route: 067
     Dates: start: 200604, end: 20100723

REACTIONS (18)
  - Pleurisy [Unknown]
  - Pulmonary embolism [Recovered/Resolved with Sequelae]
  - Deep vein thrombosis [Recovering/Resolving]
  - Varicose vein [Unknown]
  - Pneumonia [Unknown]
  - Bronchitis [Unknown]
  - Ovarian cyst [Recovered/Resolved]
  - Papilloma viral infection [Recovered/Resolved]
  - Chloasma [Unknown]
  - Pelvic pain [Unknown]
  - Vertigo [Unknown]
  - Nausea [Recovering/Resolving]
  - Fatigue [Unknown]
  - Pulmonary granuloma [Unknown]
  - Headache [Unknown]
  - Cervical dysplasia [Unknown]
  - Vaginal discharge [Unknown]
  - Foreign body [Unknown]
